FAERS Safety Report 16939366 (Version 2)
Quarter: 2019Q4

REPORT INFORMATION
  Report Type: Spontaneous
  Country: DE (occurrence: DE)
  Receive Date: 20191021
  Receipt Date: 20191221
  Transmission Date: 20200122
  Serious: Yes (Other)
  Sender: FDA-Public Use
  Company Number: DE-AMGEN-DEUSP2019160383

PATIENT
  Age: 52 Year
  Sex: Female

DRUGS (1)
  1. ERENUMAB [Suspect]
     Active Substance: ERENUMAB
     Indication: CLUSTER HEADACHE
     Dosage: 210 MILLIGRAM
     Route: 065

REACTIONS (3)
  - Product administration error [Unknown]
  - Syncope [Unknown]
  - Dizziness postural [Unknown]
